FAERS Safety Report 9017120 (Version 2)
Quarter: 2013Q1

REPORT INFORMATION
  Report Type: Report from Study
  Country: DE (occurrence: DE)
  Receive Date: 20130117
  Receipt Date: 20130222
  Transmission Date: 20140127
  Serious: Yes (Hospitalization)
  Sender: FDA-Public Use
  Company Number: PHHO2013DE001027

PATIENT
  Age: 24 Year
  Sex: Female
  Weight: 77.7 kg

DRUGS (2)
  1. FTY [Suspect]
     Indication: RELAPSING-REMITTING MULTIPLE SCLEROSIS
     Dosage: 0.5 MG, UNK
     Route: 048
     Dates: start: 20130107, end: 20130112
  2. FTY [Suspect]
     Dosage: 0.5 MG, UNK
     Route: 048
     Dates: start: 20130120

REACTIONS (2)
  - Chest pain [Recovered/Resolved]
  - Dizziness [Recovered/Resolved]
